FAERS Safety Report 20821718 (Version 1)
Quarter: 2022Q2

REPORT INFORMATION
  Report Type: Spontaneous
  Country: US (occurrence: None)
  Receive Date: 20220512
  Receipt Date: 20220512
  Transmission Date: 20220721
  Serious: Yes (Other)
  Sender: FDA-Public Use
  Company Number: None

PATIENT
  Sex: Female

DRUGS (20)
  1. BOTOX [Suspect]
     Active Substance: ONABOTULINUMTOXINA
     Indication: Migraine without aura
     Dosage: OTHER FREQUENCY : EVERY 12 WEEKS;?
     Route: 030
     Dates: start: 20210525
  2. AMLODIPINE TAB [Concomitant]
  3. ARIPIPRAZOLE TAB [Concomitant]
  4. CLONIDINE TAB [Concomitant]
  5. CYANOCOBALAMIN INJ [Concomitant]
  6. DULOXETINE HYDROCHLORIDE [Concomitant]
     Active Substance: DULOXETINE HYDROCHLORIDE
  7. LEVOTHYROXINE [Concomitant]
     Active Substance: LEVOTHYROXINE
  8. LOSARTAN POT TAB [Concomitant]
  9. NURTEC TAB [Concomitant]
  10. ONDANSETRON TAB [Concomitant]
  11. PANTOPRAZOLE TAB [Concomitant]
  12. PREDNISONE [Concomitant]
     Active Substance: PREDNISONE
  13. PROGESTERONE [Concomitant]
     Active Substance: PROGESTERONE
  14. PROMETHAZINE HYDROCHLORIDE [Concomitant]
     Active Substance: PROMETHAZINE HYDROCHLORIDE
  15. ROPINIROLE TAB [Concomitant]
  16. ROSUVASTATIN [Concomitant]
     Active Substance: ROSUVASTATIN
  17. SUMATRIPTAN INJ [Concomitant]
  18. TEMAZEPAM [Concomitant]
     Active Substance: TEMAZEPAM
  19. TIZANIDINE HYDROCHLORIDE [Concomitant]
     Active Substance: TIZANIDINE HYDROCHLORIDE
  20. TROKENDI XR CAP [Concomitant]

REACTIONS (1)
  - Breast cancer [None]
